FAERS Safety Report 5641951-X (Version None)
Quarter: 2008Q1

REPORT INFORMATION
  Report Type: 
  Country: None (occurrence: None)
  Receive Date: 20080131
  Receipt Date: 20071205
  Transmission Date: 20080703
  Serious: No
  Sender: FDA-Public Use
  Company Number: 163-21880-07120299

PATIENT
  Age: 59 Year
  Sex: Female

DRUGS (2)
  1. REVLIMID [Suspect]
     Indication: MULTIPLE MYELOMA
     Dosage: 25 MG, DAILY X 21 DAYS, ORAL ; 15 MG, DAILY X 21 DAYS, ORAL
     Route: 048
     Dates: start: 20070725, end: 20070901
  2. REVLIMID [Suspect]
     Indication: MULTIPLE MYELOMA
     Dosage: 25 MG, DAILY X 21 DAYS, ORAL ; 15 MG, DAILY X 21 DAYS, ORAL
     Route: 048
     Dates: start: 20070911, end: 20071115

REACTIONS (2)
  - DRUG INEFFECTIVE [None]
  - PROTEIN TOTAL INCREASED [None]
